FAERS Safety Report 17150004 (Version 1)
Quarter: 2019Q4

REPORT INFORMATION
  Report Type: Spontaneous
  Country: IT (occurrence: IT)
  Receive Date: 20191213
  Receipt Date: 20191213
  Transmission Date: 20200122
  Serious: Yes (Death)
  Sender: FDA-Public Use
  Company Number: IT-ACCORD-165058

PATIENT
  Age: 63 Year
  Sex: Male

DRUGS (8)
  1. LEVOPRAID [Concomitant]
  2. CARDURA [Concomitant]
     Active Substance: DOXAZOSIN MESYLATE
  3. TORVAST [Concomitant]
     Active Substance: ATORVASTATIN
  4. CARBOPLATIN. [Suspect]
     Active Substance: CARBOPLATIN
     Indication: LUNG NEOPLASM MALIGNANT
     Route: 042
     Dates: start: 20190822, end: 20191120
  5. BISOPROLOL [Concomitant]
     Active Substance: BISOPROLOL
  6. LUCEN [Concomitant]
     Active Substance: ESOMEPRAZOLE
  7. CARDIOASPIRIN [Concomitant]
     Active Substance: ASPIRIN
  8. OLPREZIDE [Concomitant]
     Active Substance: HYDROCHLOROTHIAZIDE\OLMESARTAN MEDOXOMIL

REACTIONS (3)
  - Pruritus [Fatal]
  - Cardiac arrest [Fatal]
  - Hypersensitivity [Fatal]

NARRATIVE: CASE EVENT DATE: 20191120
